FAERS Safety Report 19449150 (Version 1)
Quarter: 2021Q2

REPORT INFORMATION
  Report Type: Spontaneous
  Country: US (occurrence: US)
  Receive Date: 20210622
  Receipt Date: 20210622
  Transmission Date: 20210717
  Serious: No
  Sender: FDA-Public Use
  Company Number: US-TEVA-2021-US-1924124

PATIENT
  Sex: Male

DRUGS (1)
  1. WARFARIN SODIUM TEVA [Suspect]
     Active Substance: WARFARIN SODIUM
     Indication: COAGULOPATHY
     Dosage: 4 MILLIGRAM DAILY;
     Route: 065
     Dates: start: 202105

REACTIONS (1)
  - International normalised ratio decreased [Unknown]
